FAERS Safety Report 8229659-8 (Version None)
Quarter: 2012Q1

REPORT INFORMATION
  Report Type: 
  Country: None (occurrence: None)
  Receive Date: 20120322
  Receipt Date: 20120316
  Transmission Date: 20120608
  Serious: Yes (Hospitalization)
  Sender: FDA-Public Use
  Company Number: PHEH2012US005474

PATIENT
  Sex: Female

DRUGS (6)
  1. RISPERIDONE [Concomitant]
  2. CYMBALTA [Concomitant]
     Indication: DEPRESSION
     Dosage: 30 MG, UNK
  3. GILENYA [Suspect]
     Indication: MULTIPLE SCLEROSIS
     Dosage: 0.5 MG, QD
     Route: 048
     Dates: start: 20110906
  4. GILENYA [Suspect]
     Dosage: 0.5 MG, QD
     Route: 048
  5. AMLODIPINE [Concomitant]
  6. SEROQUEL [Concomitant]
     Indication: DEPRESSION

REACTIONS (4)
  - HEPATIC ENZYME INCREASED [None]
  - LIVER INJURY [None]
  - NEURALGIA [None]
  - FACIAL PAIN [None]
